FAERS Safety Report 6757477-6 (Version None)
Quarter: 2010Q2

REPORT INFORMATION
  Report Type: 
  Country: None (occurrence: None)
  Receive Date: 20100607
  Receipt Date: 20100524
  Transmission Date: 20101027
  Serious: No
  Sender: FDA-Public Use
  Company Number: US-BIOGENIDEC-2010BI017641

PATIENT
  Age: 74 Year
  Sex: Female

DRUGS (1)
  1. AVONEX [Suspect]
     Indication: MULTIPLE SCLEROSIS
     Route: 030
     Dates: start: 19980101

REACTIONS (5)
  - BALANCE DISORDER [None]
  - DRUG INEFFECTIVE [None]
  - FALL [None]
  - MEMORY IMPAIRMENT [None]
  - MUSCULAR WEAKNESS [None]
